FAERS Safety Report 7655082-0 (Version None)
Quarter: 2011Q3

REPORT INFORMATION
  Report Type: 
  Country: None (occurrence: None)
  Receive Date: 20110801
  Receipt Date: 20110719
  Transmission Date: 20111222
  Serious: Yes (Disabling)
  Sender: FDA-Public Use
  Company Number: 822700

PATIENT
  Age: 92 Year
  Sex: Female

DRUGS (1)
  1. PERIDEX [Suspect]
     Indication: SURGERY
     Route: 048
     Dates: start: 20081001, end: 20081001

REACTIONS (3)
  - ACTIVITIES OF DAILY LIVING IMPAIRED [None]
  - HAEMORRHAGE [None]
  - ASTHENIA [None]
